FAERS Safety Report 16329370 (Version 1)
Quarter: 2019Q2

REPORT INFORMATION
  Report Type: Spontaneous
  Country: US (occurrence: US)
  Receive Date: 20190520
  Receipt Date: 20190520
  Transmission Date: 20190711
  Serious: Yes (Other)
  Sender: FDA-Public Use
  Company Number: US-SA-2019SA134995

PATIENT

DRUGS (5)
  1. AMBIEN CR [Suspect]
     Active Substance: ZOLPIDEM TARTRATE
  2. QUETIAPINE FUMARATE. [Suspect]
     Active Substance: QUETIAPINE FUMARATE
  3. QUETIAPINE FUMARATE. [Suspect]
     Active Substance: QUETIAPINE FUMARATE
  4. AMBIEN [Suspect]
     Active Substance: ZOLPIDEM TARTRATE
  5. MIRTAZAPINE. [Suspect]
     Active Substance: MIRTAZAPINE

REACTIONS (3)
  - Pain [Unknown]
  - Insomnia [Unknown]
  - Pancreatitis [Unknown]
